FAERS Safety Report 4821968-5 (Version None)
Quarter: 2005Q4

REPORT INFORMATION
  Report Type: 
  Country: None (occurrence: None)
  Receive Date: 20051103
  Receipt Date: 20051019
  Transmission Date: 20060501
  Serious: Yes (Death, Hospitalization)
  Sender: FDA-Public Use
  Company Number: 230001M05MEX

PATIENT
  Age: 55 Year
  Sex: Female

DRUGS (5)
  1. INTERFERON BETA              (INTERFERON BETA) [Suspect]
     Indication: MULTIPLE SCLEROSIS
     Dosage: 12 OTHER, 3 IN 1 WEEKS, SUBCUTANEOUS
     Route: 058
     Dates: start: 20050804, end: 20050907
  2. REBIF [Suspect]
     Indication: MULTIPLE SCLEROSIS
     Dosage: 44 MCG, 3 IN 1 WEEKS, SUBCUTANEOUS
     Route: 058
     Dates: start: 20000610, end: 20050524
  3. MITOXANTRONE [Suspect]
     Indication: PRIMARY PROGRESSIVE MULTIPLE SCLEROSIS
     Dosage: 10 MG, ONCE, INTRAVENOUS   SEE IMAGE
     Route: 042
     Dates: start: 20031021, end: 20031021
  4. MITOXANTRONE [Suspect]
     Indication: PRIMARY PROGRESSIVE MULTIPLE SCLEROSIS
     Dosage: 10 MG, ONCE, INTRAVENOUS   SEE IMAGE
     Route: 042
     Dates: start: 20031126, end: 20031126
  5. MITOXANTRONE [Suspect]
     Indication: PRIMARY PROGRESSIVE MULTIPLE SCLEROSIS
     Dosage: 10 MG, ONCE, INTRAVENOUS   SEE IMAGE
     Route: 042
     Dates: start: 20050621, end: 20050621

REACTIONS (4)
  - MULTIPLE SCLEROSIS RELAPSE [None]
  - MYELITIS [None]
  - PYELONEPHRITIS [None]
  - QUADRIPARESIS [None]
